FAERS Safety Report 25229528 (Version 2)
Quarter: 2025Q2

REPORT INFORMATION
  Report Type: Report from Study
  Country: US (occurrence: US)
  Receive Date: 20250423
  Receipt Date: 20250626
  Transmission Date: 20250716
  Serious: Yes (Other)
  Sender: NOVARTIS
  Company Number: US-002147023-NVSC2024US091399

PATIENT
  Sex: Male

DRUGS (1)
  1. KESIMPTA [Suspect]
     Active Substance: OFATUMUMAB
     Indication: Product used for unknown indication
     Route: 065

REACTIONS (9)
  - Multiple sclerosis [Unknown]
  - Influenza like illness [Unknown]
  - Asthenia [Unknown]
  - Chills [Unknown]
  - Nasopharyngitis [Unknown]
  - Pain [Unknown]
  - Arthralgia [Unknown]
  - Sunburn [Unknown]
  - Inappropriate schedule of product administration [Unknown]
